FAERS Safety Report 11645209 (Version 1)
Quarter: 2015Q4

REPORT INFORMATION
  Report Type: Spontaneous
  Country: DE (occurrence: DE)
  Receive Date: 20151020
  Receipt Date: 20151020
  Transmission Date: 20160304
  Serious: Yes (Life-Threatening, Other)
  Sender: FDA-Public Use
  Company Number: DE-ELI_LILLY_AND_COMPANY-DE201510004584

PATIENT

DRUGS (4)
  1. HOGGAR N [Concomitant]
     Indication: SLEEP DISORDER
     Dosage: UNK, SINGLE
     Route: 064
  2. FEMIBION                           /01597501/ [Concomitant]
     Active Substance: CALCIUM PHOSPHATE, DIBASIC, ANHYDROUS\FERROUS SUCCINATE\MAGNESIUM HYDROXIDE
     Indication: PROPHYLAXIS OF NEURAL TUBE DEFECT
     Dosage: 0.8 MG, UNKNOWN
     Route: 064
     Dates: start: 20141001, end: 20150506
  3. CYMBALTA [Suspect]
     Active Substance: DULOXETINE HYDROCHLORIDE
     Indication: DEPRESSION
     Dosage: 60 MG, QD
     Route: 064
     Dates: start: 20140904, end: 20150506
  4. ZOPICLONE [Concomitant]
     Active Substance: ZOPICLONE
     Indication: SLEEP DISORDER
     Dosage: 7.5 MG, OTHER
     Route: 064
     Dates: start: 20141030, end: 20141117

REACTIONS (4)
  - Disturbance in attention [Recovered/Resolved]
  - Feeding disorder of infancy or early childhood [Recovered/Resolved]
  - Neonatal respiratory distress syndrome [Recovered/Resolved]
  - Premature baby [Recovered/Resolved]

NARRATIVE: CASE EVENT DATE: 20150506
